FAERS Safety Report 10697528 (Version 1)
Quarter: 2015Q1

REPORT INFORMATION
  Report Type: Spontaneous
  Country: US (occurrence: None)
  Receive Date: 20150107
  Receipt Date: 20150107
  Transmission Date: 20150721
  Serious: Yes (Death, Hospitalization)
  Sender: FDA-Public Use
  Company Number: None

PATIENT
  Age: 60 Year
  Sex: Male
  Weight: 109.5 kg

DRUGS (1)
  1. TAXOTERE [Suspect]
     Active Substance: DOCETAXEL
     Dates: end: 20141211

REACTIONS (17)
  - Acute respiratory failure [None]
  - Atrial fibrillation [None]
  - Hyperkalaemia [None]
  - Hypoxia [None]
  - Squamous cell carcinoma [None]
  - Confusional state [None]
  - Abdominal pain lower [None]
  - Haemoptysis [None]
  - Malignant neoplasm progression [None]
  - Brain natriuretic peptide increased [None]
  - General physical health deterioration [None]
  - Tachycardia [None]
  - Mental status changes [None]
  - Dyspnoea [None]
  - Dehydration [None]
  - Acute kidney injury [None]
  - Disorientation [None]

NARRATIVE: CASE EVENT DATE: 20150101
